FAERS Safety Report 9339906 (Version 1)
Quarter: 2013Q2

REPORT INFORMATION
  Report Type: Spontaneous
  Country: US (occurrence: None)
  Receive Date: 20130607
  Receipt Date: 20130607
  Transmission Date: 20140414
  Serious: Yes (Hospitalization)
  Sender: FDA-Public Use
  Company Number: None

PATIENT
  Age: 64 Year
  Sex: Male
  Weight: 68.5 kg

DRUGS (2)
  1. ETOPOSIDE [Suspect]
     Dates: start: 20130422, end: 20130424
  2. CARBOPLATIN [Suspect]
     Indication: SMALL CELL LUNG CANCER
     Dates: start: 20130422, end: 20130422

REACTIONS (5)
  - Pain in extremity [None]
  - Erythema [None]
  - Thrombocytopenia [None]
  - Leukopenia [None]
  - Anaemia [None]
